FAERS Safety Report 6716997-0 (Version None)
Quarter: 2010Q2

REPORT INFORMATION
  Report Type: 
  Country: None (occurrence: None)
  Receive Date: 20100510
  Receipt Date: 20100430
  Transmission Date: 20101027
  Serious: No
  Sender: FDA-Public Use
  Company Number: US-JNJFOC-20100500949

PATIENT
  Sex: Female
  Weight: 49.9 kg

DRUGS (2)
  1. FENTANYL CITRATE [Suspect]
     Indication: PAIN
     Route: 062
  2. DEMEROL [Concomitant]
     Indication: BREAKTHROUGH PAIN
     Route: 048

REACTIONS (5)
  - APPLICATION SITE ERYTHEMA [None]
  - APPLICATION SITE PRURITUS [None]
  - INCORRECT DRUG ADMINISTRATION DURATION [None]
  - MUSCLE SPASMS [None]
  - PRODUCT QUALITY ISSUE [None]
